FAERS Safety Report 12491371 (Version 1)
Quarter: 2016Q2

REPORT INFORMATION
  Report Type: Spontaneous
  Country: US (occurrence: None)
  Receive Date: 20160622
  Receipt Date: 20160622
  Transmission Date: 20160815
  Serious: Yes (Disabling)
  Sender: FDA-Public Use
  Company Number: None

PATIENT
  Age: 49 Year
  Sex: Female
  Weight: 86.18 kg

DRUGS (6)
  1. ANTIVERT [Concomitant]
     Active Substance: MECLIZINE HYDROCHLORIDE
  2. CONTRAVE [Suspect]
     Active Substance: BUPROPION HYDROCHLORIDE\NALTREXONE HYDROCHLORIDE
     Indication: WEIGHT DECREASED
     Dosage: 120 TABLET(S) PER MFR INSTRUCTIO TAKEN BY MOUTH
     Route: 048
     Dates: start: 20160422, end: 20160620
  3. TAHITIAN NONI JUICE [Concomitant]
  4. NECON [Concomitant]
     Active Substance: ETHINYL ESTRADIOL\NORETHINDRONE
  5. IMITREX [Concomitant]
     Active Substance: SUMATRIPTAN SUCCINATE
  6. VALIUM [Concomitant]
     Active Substance: DIAZEPAM

REACTIONS (12)
  - Blood pressure increased [None]
  - Hyperventilation [None]
  - Screaming [None]
  - Dissociative disorder [None]
  - Aggression [None]
  - Abnormal sensation in eye [None]
  - Dyspnoea [None]
  - Fear [None]
  - Crying [None]
  - Nervousness [None]
  - Anxiety [None]
  - Restlessness [None]

NARRATIVE: CASE EVENT DATE: 20160620
